FAERS Safety Report 8306035-0 (Version None)
Quarter: 2012Q2

REPORT INFORMATION
  Report Type: 
  Country: None (occurrence: None)
  Receive Date: 20120423
  Receipt Date: 20120412
  Transmission Date: 20120825
  Serious: Yes (Other)
  Sender: FDA-Public Use
  Company Number: CHPA2012US002281

PATIENT
  Age: 51 Year
  Sex: Female

DRUGS (2)
  1. DRUG THERAPY NOS [Concomitant]
     Indication: HYPERSENSITIVITY
     Dosage: UNK, UNK
     Route: 042
     Dates: start: 20120115
  2. EXCEDRIN EXTRA STRENGTH TABLETS [Suspect]
     Indication: PAIN
     Dosage: 2 DF, ONCE/SINGLE
     Route: 048
     Dates: start: 20120115, end: 20120115

REACTIONS (6)
  - HYPERHIDROSIS [None]
  - PHARYNGEAL OEDEMA [None]
  - SWOLLEN TONGUE [None]
  - DIZZINESS [None]
  - SWELLING FACE [None]
  - HYPERSENSITIVITY [None]
